FAERS Safety Report 7288683-2 (Version None)
Quarter: 2011Q1

REPORT INFORMATION
  Report Type: 
  Country: None (occurrence: None)
  Receive Date: 20110211
  Receipt Date: 20110203
  Transmission Date: 20110831
  Serious: Yes (Death, Other)
  Sender: FDA-Public Use
  Company Number: JP-AMGEN-JPNCT2011003487

PATIENT
  Age: 65 Year
  Sex: Male
  Weight: 70 kg

DRUGS (6)
  1. DECADRON PHOSPHATE W/XYLOCAINE [Concomitant]
     Route: 042
  2. OLMETEC [Concomitant]
     Route: 048
  3. PANITUMUMAB [Suspect]
     Indication: COLORECTAL CANCER
     Dosage: 6 MG/KG, Q2WK
     Route: 041
     Dates: start: 20100907, end: 20101214
  4. GRANISETRON HCL [Concomitant]
     Route: 042
  5. TOPOTECAN [Concomitant]
     Indication: COLORECTAL CANCER
     Dosage: 150 MG/M2, Q2WK
     Route: 041
     Dates: start: 20100907, end: 20101214
  6. PLETAL [Concomitant]
     Route: 048

REACTIONS (9)
  - HYPOKALAEMIA [None]
  - DERMATITIS ACNEIFORM [None]
  - CEREBRAL INFARCTION [None]
  - PNEUMONIA [None]
  - HYPOCALCAEMIA [None]
  - DIARRHOEA [None]
  - HYPOMAGNESAEMIA [None]
  - COLORECTAL CANCER [None]
  - DRY SKIN [None]
